FAERS Safety Report 9280280 (Version 1)
Quarter: 2013Q2

REPORT INFORMATION
  Report Type: Spontaneous
  Country: US (occurrence: US)
  Receive Date: 20130509
  Receipt Date: 20130509
  Transmission Date: 20140414
  Serious: Yes (Other)
  Sender: FDA-Public Use
  Company Number: US-AMGEN-USASP2013031965

PATIENT
  Sex: Male

DRUGS (2)
  1. XGEVA [Suspect]
     Indication: BONE GIANT CELL TUMOUR
  2. DOCETAXEL [Concomitant]

REACTIONS (1)
  - Squamous cell carcinoma [Unknown]
